FAERS Safety Report 7760168-6 (Version None)
Quarter: 2011Q3

REPORT INFORMATION
  Report Type: 
  Country: None (occurrence: None)
  Receive Date: 20110919
  Receipt Date: 20110907
  Transmission Date: 20111222
  Serious: Yes (Hospitalization)
  Sender: FDA-Public Use
  Company Number: US-VERTEX PHARMACEUTICALS INC.-AE-2011-001380

PATIENT
  Sex: Female
  Weight: 49.94 kg

DRUGS (3)
  1. XIFAXAN [Concomitant]
     Indication: HEPATIC ENCEPHALOPATHY
  2. INFERGEN [Concomitant]
     Indication: HEPATITIS C
  3. INCIVEK [Suspect]
     Indication: HEPATITIS C
     Route: 048

REACTIONS (6)
  - SEPSIS [None]
  - CONFUSIONAL STATE [None]
  - RED BLOOD CELL COUNT DECREASED [None]
  - WHITE BLOOD CELL COUNT DECREASED [None]
  - INCORRECT DRUG ADMINISTRATION DURATION [None]
  - FATIGUE [None]
